FAERS Safety Report 6936171-2 (Version None)
Quarter: 2010Q3

REPORT INFORMATION
  Report Type: 
  Country: None (occurrence: None)
  Receive Date: 20100823
  Receipt Date: 20100811
  Transmission Date: 20110219
  Serious: Yes (Other)
  Sender: FDA-Public Use
  Company Number: US-PFIZER INC-2010101758

PATIENT
  Sex: Male

DRUGS (1)
  1. NARDIL [Suspect]
     Indication: EMOTIONAL DISORDER
     Dosage: UNK
     Route: 048
     Dates: start: 19870101

REACTIONS (7)
  - ARTHRITIS [None]
  - BLOOD PRESSURE ABNORMAL [None]
  - CARDIAC DISORDER [None]
  - ERECTILE DYSFUNCTION [None]
  - INSOMNIA [None]
  - PENIS DISORDER [None]
  - PROSTATE CANCER [None]
